FAERS Safety Report 4273301-8 (Version None)
Quarter: 2004Q1

REPORT INFORMATION
  Report Type: 
  Country: None (occurrence: None)
  Receive Date: 20040114
  Receipt Date: 20040102
  Transmission Date: 20041129
  Serious: Yes (Other)
  Sender: FDA-Public Use
  Company Number: 200410000BCA

PATIENT
  Age: 54 Year
  Sex: Female

DRUGS (4)
  1. AVELOX [Suspect]
     Indication: BRONCHITIS
     Dosage: 400 MG, TOTAL DAILY, ORAL
     Route: 048
     Dates: start: 20040102
  2. VIVELLE [Concomitant]
  3. WELLBUTRIN SR [Concomitant]
  4. THYROID TAB [Concomitant]

REACTIONS (8)
  - DIZZINESS [None]
  - DYSPNOEA [None]
  - FEELING ABNORMAL [None]
  - MOVEMENT DISORDER [None]
  - MUSCULAR WEAKNESS [None]
  - NAUSEA [None]
  - PARAESTHESIA [None]
  - SENSATION OF HEAVINESS [None]
